FAERS Safety Report 21801224 (Version 3)
Quarter: 2023Q1

REPORT INFORMATION
  Report Type: Report from Study
  Country: JP (occurrence: JP)
  Receive Date: 20221230
  Receipt Date: 20230125
  Transmission Date: 20230418
  Serious: Yes (Hospitalization)
  Sender: FDA-Public Use
  Company Number: JP-JNJFOC-20221261874

PATIENT
  Age: 45 Year
  Sex: Male
  Weight: 73.8 kg

DRUGS (23)
  1. AMIVANTAMAB [Suspect]
     Active Substance: AMIVANTAMAB
     Indication: Non-small cell lung cancer
     Dosage: C1 D 1 AT A DOSE OF 350 MG, C1D2 700 MG, FROM C1D8-C1D15 AT 1050 MG AND IN C2 1050 MG/2 WEEK
     Route: 042
     Dates: start: 20211214, end: 20221212
  2. ALCLOMETASONE DIPROPIONATE [Concomitant]
     Active Substance: ALCLOMETASONE DIPROPIONATE
     Indication: Dermatitis acneiform
     Route: 061
     Dates: start: 20191118
  3. DIFLUPREDNATE [Concomitant]
     Active Substance: DIFLUPREDNATE
     Indication: Dermatitis acneiform
     Route: 061
     Dates: start: 20191122
  4. DIFLUPREDNATE [Concomitant]
     Active Substance: DIFLUPREDNATE
     Indication: Paronychia
     Route: 061
     Dates: start: 20220502
  5. BETAMETHASONE VALERATE [Concomitant]
     Active Substance: BETAMETHASONE VALERATE
     Indication: Dermatitis acneiform
     Route: 061
     Dates: start: 20200205
  6. NADIFLOXACIN [Concomitant]
     Active Substance: NADIFLOXACIN
     Indication: Dermatitis acneiform
     Route: 061
     Dates: start: 20211011
  7. MINOCYCLINE HYDROCHLORIDE [Concomitant]
     Active Substance: MINOCYCLINE HYDROCHLORIDE
     Indication: Dermatitis acneiform
     Route: 048
     Dates: start: 20211111
  8. HEPARINOID [Concomitant]
     Indication: Dry skin
     Route: 061
     Dates: start: 20191127
  9. HEPARINOID [Concomitant]
     Route: 061
     Dates: start: 20200108
  10. HEPARINOID [Concomitant]
     Route: 061
     Dates: start: 20220207
  11. DIFLUCORTOLONE VALERATE;LIDOCAINE [Concomitant]
     Indication: Haemorrhoidal haemorrhage
     Route: 061
     Dates: start: 20220125
  12. EPERISONE HYDROCHLORIDE [Concomitant]
     Active Substance: EPERISONE HYDROCHLORIDE
     Indication: Muscle spasms
     Route: 048
     Dates: start: 20220207
  13. DIFLORASONE DIACETATE [Concomitant]
     Active Substance: DIFLORASONE DIACETATE
     Indication: Dry skin
     Route: 061
     Dates: start: 20220207
  14. MAGNESIUM OXIDE [Concomitant]
     Active Substance: MAGNESIUM OXIDE
     Indication: Haemorrhoidal haemorrhage
     Route: 048
     Dates: start: 20220228
  15. CLINDAMYCIN PHOSPHATE [Concomitant]
     Active Substance: CLINDAMYCIN PHOSPHATE
     Indication: Paronychia
     Route: 061
     Dates: start: 20220323
  16. FUROSEMIDE [Concomitant]
     Active Substance: FUROSEMIDE
     Indication: Oedema peripheral
     Route: 048
     Dates: start: 20220419, end: 20221226
  17. SPIRONOLACTONE [Concomitant]
     Active Substance: SPIRONOLACTONE
     Indication: Oedema peripheral
     Route: 048
     Dates: start: 20220419, end: 20221226
  18. REBAMIPIDE [Concomitant]
     Active Substance: REBAMIPIDE
     Indication: Prophylaxis against gastrointestinal ulcer
     Route: 048
     Dates: start: 20220502
  19. ACETAMINOPHEN [Concomitant]
     Active Substance: ACETAMINOPHEN
     Indication: Headache
     Route: 048
     Dates: start: 20220923
  20. PREDNISOLONE [Concomitant]
     Active Substance: PREDNISOLONE
     Indication: Paronychia
     Route: 048
     Dates: start: 20221101
  21. FLURANDRENOLIDE [Concomitant]
     Active Substance: FLURANDRENOLIDE
     Indication: Skin fissures
     Route: 061
     Dates: start: 20221024
  22. RISEDRONATE SODIUM [Concomitant]
     Active Substance: RISEDRONATE SODIUM
     Indication: Osteoporosis prophylaxis
     Route: 048
     Dates: start: 20221218
  23. MODERNA COVID-19 VACCINE [Concomitant]
     Active Substance: ELASOMERAN
     Indication: COVID-19 prophylaxis
     Route: 030
     Dates: start: 20221207, end: 20221207

REACTIONS (2)
  - Pulmonary embolism [Recovered/Resolved]
  - Deep vein thrombosis [Recovering/Resolving]

NARRATIVE: CASE EVENT DATE: 20221222
